FAERS Safety Report 5907615-X (Version None)
Quarter: 2008Q4

REPORT INFORMATION
  Report Type: 
  Country: None (occurrence: None)
  Receive Date: 20081003
  Receipt Date: 20080923
  Transmission Date: 20090506
  Serious: Yes (Hospitalization)
  Sender: FDA-Public Use
  Company Number: GB-ROCHE-579058

PATIENT
  Sex: Female
  Weight: 106 kg

DRUGS (4)
  1. ORLISTAT [Suspect]
     Indication: OBESITY
     Route: 048
     Dates: start: 20080501
  2. AMOXICILLIN [Concomitant]
     Route: 048
  3. CLARITHROMYCIN [Concomitant]
     Route: 048
  4. CIPROFLOXACIN [Concomitant]
     Route: 048

REACTIONS (3)
  - PERICARDIAL EFFUSION [None]
  - PLEURAL INFECTION [None]
  - PNEUMONIA [None]
